FAERS Safety Report 12439453 (Version 2)
Quarter: 2016Q2

REPORT INFORMATION
  Report Type: Spontaneous
  Country: IT (occurrence: IT)
  Receive Date: 20160606
  Receipt Date: 20160609
  Transmission Date: 20160815
  Serious: Yes (Hospitalization, Other)
  Sender: FDA-Public Use
  Company Number: IT-PFIZER INC-2016284313

PATIENT
  Age: 40 Year
  Sex: Female

DRUGS (2)
  1. FLUNOX [Suspect]
     Active Substance: FLURAZEPAM HYDROCHLORIDE
     Indication: DRUG ABUSE
     Dosage: 15 MG (3 TABLETS)
     Route: 048
     Dates: start: 20160401, end: 20160401
  2. TAVOR (LORAZEPAM) [Suspect]
     Active Substance: LORAZEPAM
     Dosage: 1 MG (20 TABLETS)
     Route: 048
     Dates: start: 20160401, end: 20160401

REACTIONS (4)
  - Sopor [Recovered/Resolved]
  - Alanine aminotransferase increased [Recovered/Resolved]
  - Drug abuse [Recovered/Resolved]
  - Aspartate aminotransferase increased [Recovered/Resolved]

NARRATIVE: CASE EVENT DATE: 20160401
